FAERS Safety Report 24967493 (Version 1)
Quarter: 2025Q1

REPORT INFORMATION
  Report Type: Spontaneous
  Country: DE (occurrence: DE)
  Receive Date: 20250214
  Receipt Date: 20250214
  Transmission Date: 20250409
  Serious: No
  Sender: ALKEM
  Company Number: DE-ALKEM LABORATORIES LIMITED-DE-ALKEM-2024-14554

PATIENT
  Age: 36 Year
  Sex: Male
  Weight: 80 kg

DRUGS (9)
  1. FINGOLIMOD [Suspect]
     Active Substance: FINGOLIMOD
     Indication: Relapsing-remitting multiple sclerosis
     Route: 048
     Dates: start: 20201105
  2. CELECOXIB [Concomitant]
     Active Substance: CELECOXIB
     Indication: Premedication
     Dosage: 200 MILLIGRAM, QD (EVERY 1 DAY)
     Route: 048
     Dates: start: 20221025, end: 20221025
  3. Comirnaty [Concomitant]
     Indication: COVID-19 immunisation
     Route: 030
     Dates: start: 20201231, end: 20201231
  4. Comirnaty [Concomitant]
     Route: 030
     Dates: start: 20210121, end: 20210121
  5. DALTEPARIN [Concomitant]
     Active Substance: DALTEPARIN
     Indication: Thrombosis prophylaxis
     Dosage: 2500 INTERNATIONAL UNIT, QD (EVERY 1 DAY)
     Route: 058
     Dates: start: 20221025, end: 20221111
  6. IBUPROFEN [Concomitant]
     Active Substance: IBUPROFEN
     Indication: Joint swelling
     Route: 048
     Dates: end: 20221024
  7. IBUPROFEN [Concomitant]
     Active Substance: IBUPROFEN
     Indication: Arthralgia
     Route: 048
     Dates: start: 20221026, end: 20221027
  8. METAMIZOL [Concomitant]
     Active Substance: METAMIZOLE SODIUM
     Indication: Arthralgia
     Route: 048
     Dates: start: 20221026, end: 20221028
  9. PANTOPRAZOLE [Concomitant]
     Active Substance: PANTOPRAZOLE
     Indication: Gastrointestinal disorder prophylaxis
     Dosage: 20 MILLIGRAM, QD (EVERY 1 DAY)
     Route: 048
     Dates: start: 20221026, end: 20221028

REACTIONS (1)
  - Lymphopenia [Not Recovered/Not Resolved]

NARRATIVE: CASE EVENT DATE: 20231212
